FAERS Safety Report 17254238 (Version 5)
Quarter: 2020Q4

REPORT INFORMATION
  Report Type: Report from Study
  Country: CN (occurrence: CN)
  Receive Date: 20200109
  Receipt Date: 20201027
  Transmission Date: 20210113
  Serious: Yes (Hospitalization)
  Sender: FDA-Public Use
  Company Number: CN-PFIZER INC-2019561067

PATIENT
  Age: 83 Year
  Sex: Male
  Weight: 67 kg

DRUGS (14)
  1. PANTOPRAZOLE SODIUM. [Concomitant]
     Active Substance: PANTOPRAZOLE SODIUM
     Indication: PROPHYLAXIS
     Dosage: 40 MG, 1X/DAY
     Route: 041
     Dates: start: 20191214, end: 20191214
  2. CALCIUM GLUCONATE. [Concomitant]
     Active Substance: CALCIUM GLUCONATE
     Indication: MINERAL SUPPLEMENTATION
     Dosage: 1 G, 1X/DAY
     Route: 041
     Dates: start: 20191215, end: 20191215
  3. PALONOSETRON HYDROCHLORIDE. [Concomitant]
     Active Substance: PALONOSETRON HYDROCHLORIDE
     Indication: PROPHYLAXIS
     Dosage: 0.25 MG, 1X/DAY
     Route: 041
     Dates: start: 20191216, end: 20191220
  4. SODIUM BICARBONATE. [Concomitant]
     Active Substance: SODIUM BICARBONATE
     Indication: PH URINE INCREASED
     Dosage: 60 ML, 1X/DAY
     Route: 041
     Dates: start: 20191213, end: 20191216
  5. POTASSIUM CITRATE. [Concomitant]
     Active Substance: POTASSIUM CITRATE
     Indication: SUPPLEMENTATION THERAPY
     Dosage: 10 ML, 3X/DAY
     Route: 048
     Dates: start: 20191213, end: 20191214
  6. POTASSIUM CITRATE. [Concomitant]
     Active Substance: POTASSIUM CITRATE
     Dosage: 30 ML, DAILY
     Route: 048
     Dates: start: 20191215, end: 20191215
  7. DEXAMETHASONE ACETATE [Concomitant]
     Active Substance: DEXAMETHASONE ACETATE
     Indication: PYREXIA
     Dosage: 3 MG, 1X/DAY
     Route: 042
     Dates: start: 20191213, end: 20191213
  8. GLASDEGIB [Suspect]
     Active Substance: GLASDEGIB
     Dosage: UNK, 1X/DAY
     Route: 048
     Dates: start: 20200108, end: 20200121
  9. GLASDEGIB [Suspect]
     Active Substance: GLASDEGIB
     Indication: ACUTE MYELOID LEUKAEMIA
     Dosage: UNK, 1X/DAY
     Route: 048
     Dates: start: 20191214, end: 20200102
  10. POTASSIUM CITRATE. [Concomitant]
     Active Substance: POTASSIUM CITRATE
     Dosage: 20 ML, 3X/DAY
     Route: 048
     Dates: start: 20191216, end: 20191220
  11. PANTOPRAZOLE SODIUM. [Concomitant]
     Active Substance: PANTOPRAZOLE SODIUM
     Dosage: 40 MG, 1X/DAY
     Route: 041
     Dates: start: 20191216, end: 20191220
  12. AZACITIDINE. [Suspect]
     Active Substance: AZACITIDINE
     Indication: ACUTE MYELOID LEUKAEMIA
     Dosage: 135.75 MG, 1X/DAY
     Route: 058
     Dates: start: 20191214, end: 20191220
  13. POTASSIUM CHLORIDE. [Concomitant]
     Active Substance: POTASSIUM CHLORIDE
     Indication: SUPPLEMENTATION THERAPY
     Dosage: 1000 MG, 1X/DAY, SUSTAINED-RELEASE TABLETS
     Route: 048
     Dates: start: 20191215, end: 20191215
  14. CEFOPERAZONE SODIUM AND SULBACTAM SODIUM [Concomitant]
     Active Substance: CEFOPERAZONE SODIUM\SULBACTAM SODIUM
     Indication: ANTI-INFECTIVE THERAPY
     Dosage: 2 G, 3X/DAY (EVERY 8 HOURS)
     Route: 041
     Dates: start: 20191213, end: 20191220

REACTIONS (1)
  - Abdominal distension [Recovered/Resolved]

NARRATIVE: CASE EVENT DATE: 20191217
